FAERS Safety Report 5800268-0 (Version None)
Quarter: 2008Q3

REPORT INFORMATION
  Report Type: 
  Country: None (occurrence: None)
  Receive Date: 20080701
  Receipt Date: 20080616
  Transmission Date: 20090109
  Serious: Yes (Hospitalization)
  Sender: FDA-Public Use
  Company Number: 2008AL007201

PATIENT
  Age: 89 Year
  Sex: Male
  Weight: 58.9676 kg

DRUGS (11)
  1. DIGOXIN [Suspect]
     Indication: ARRHYTHMIA
     Dosage: 0.125MG DAILY PO
     Route: 048
  2. DIGOXIN [Suspect]
     Indication: CARDIAC FAILURE
     Dosage: 0.125MG DAILY PO
     Route: 048
  3. PREDNISONE [Concomitant]
  4. LIPITOR [Concomitant]
  5. RYTHMOL [Concomitant]
  6. LASIX [Concomitant]
  7. HYDROLOZONE [Concomitant]
  8. ACTOS [Concomitant]
  9. GLYBURIDE [Concomitant]
  10. INDERAL [Concomitant]
  11. MONOXADIL [Concomitant]

REACTIONS (5)
  - BLOOD GLUCOSE DECREASED [None]
  - BLOOD PRESSURE INADEQUATELY CONTROLLED [None]
  - CARDIOACTIVE DRUG LEVEL INCREASED [None]
  - HYPOTENSION [None]
  - RENAL IMPAIRMENT [None]
